FAERS Safety Report 8128918-7 (Version None)
Quarter: 2012Q1

REPORT INFORMATION
  Report Type: 
  Country: None (occurrence: None)
  Receive Date: 20120210
  Receipt Date: 20110517
  Transmission Date: 20120608
  Serious: Yes (Other)
  Sender: FDA-Public Use
  Company Number: US-BRISTOL-MYERS SQUIBB COMPANY-15751449

PATIENT
  Age: 48 Year
  Sex: Female

DRUGS (4)
  1. IBUPROFEN [Concomitant]
  2. ORENCIA [Suspect]
     Dosage: RECENT INF:11MAY2011
  3. HYDROCODONE BITARTRATE [Concomitant]
     Dosage: AT NIGHT
  4. NAPROXEN (ALEVE) [Concomitant]

REACTIONS (2)
  - CERVIX CARCINOMA [None]
  - MUSCULOSKELETAL STIFFNESS [None]
